FAERS Safety Report 8990074 (Version 5)
Quarter: 2014Q3

REPORT INFORMATION
  Report Type: Report from Study
  Country: US (occurrence: US)
  Receive Date: 20121228
  Receipt Date: 20140929
  Transmission Date: 20150326
  Serious: Yes (Hospitalization)
  Sender: FDA-Public Use
  Company Number: US-MPIJNJ-2012-09228

PATIENT
  Age: 69 Year
  Sex: Male
  Weight: 84.35 kg

DRUGS (17)
  1. CARBIDOPA/LEVODOPA [Concomitant]
     Active Substance: CARBIDOPA\LEVODOPA
  2. FIBER [Concomitant]
     Active Substance: PSYLLIUM HUSK
  3. DARBEPOETIN ALFA [Concomitant]
     Active Substance: DARBEPOETIN ALFA
  4. VELCADE [Suspect]
     Active Substance: BORTEZOMIB
     Indication: PLASMA CELL MYELOMA
     Dosage: 1.3 MG/M2, 2/WEEK
     Route: 058
     Dates: start: 20120416, end: 20120719
  5. HYDROMORPHONE HCL [Concomitant]
     Active Substance: HYDROMORPHONE HYDROCHLORIDE
  6. UBIDECARENONE [Concomitant]
     Active Substance: UBIDECARENONE
  7. CARISOPRODOL. [Concomitant]
     Active Substance: CARISOPRODOL
  8. VITAMIN D [Concomitant]
     Active Substance: CHOLECALCIFEROL
  9. DECADRON [Suspect]
     Active Substance: DEXAMETHASONE
     Dosage: 40 MG, 4 DAYS ON, 4 DAYS OFF
     Route: 048
     Dates: start: 20120416
  10. CYCLOPHOSPHAMIDE. [Suspect]
     Active Substance: CYCLOPHOSPHAMIDE
     Dosage: 500 MG, 1/WEEK
     Route: 048
     Dates: start: 20120622
  11. GABAPENTIN. [Concomitant]
     Active Substance: GABAPENTIN
  12. OMEPRAZOLE. [Concomitant]
     Active Substance: OMEPRAZOLE
  13. ZOLPIDEM TARTRATE. [Concomitant]
     Active Substance: ZOLPIDEM TARTRATE
  14. OMEGA-3 MARINE TRIGLYCERIDES [Concomitant]
     Active Substance: FISH OIL
  15. LOMOTIL [Concomitant]
     Active Substance: ATROPINE SULFATE\DIPHENOXYLATE HYDROCHLORIDE
  16. RAMIPRIL. [Concomitant]
     Active Substance: RAMIPRIL
  17. PAMIDRONIC ACID [Concomitant]
     Active Substance: PAMIDRONIC ACID

REACTIONS (4)
  - Colitis [Recovering/Resolving]
  - Anaemia [Not Recovered/Not Resolved]
  - Neuropathy peripheral [Unknown]
  - Thrombocytopenia [Not Recovered/Not Resolved]

NARRATIVE: CASE EVENT DATE: 20120720
